FAERS Safety Report 9276245 (Version 1)
Quarter: 2012Q4

REPORT INFORMATION
  Report Type: Spontaneous
  Country: IT (occurrence: None)
  Receive Date: 20121109
  Receipt Date: 20121109
  Transmission Date: 20130627
  Serious: Yes (Life-Threatening, Hospitalization)
  Sender: FDA-Public Use
  Company Number: 2012S1000060

PATIENT
  Age: 57 Year
  Sex: Male

DRUGS (5)
  1. CUBICIN (DAPTOMYCIN) [Suspect]
     Indication: CHRONIC OSTEOMYELITIS
     Route: 042
     Dates: start: 20110901
  2. CUBICIN (DAPTOMYCIN) [Suspect]
     Indication: STAPHYLOCOCCAL OSTEOMYELITIS
     Route: 042
     Dates: start: 20110901
  3. NIMESULIDE [Concomitant]
  4. RAMIPRIL [Concomitant]
  5. SIRDALUD [Concomitant]

REACTIONS (2)
  - Nephritic syndrome [None]
  - Renal failure acute [None]
